FAERS Safety Report 14253468 (Version 1)
Quarter: 2017Q4

REPORT INFORMATION
  Report Type: Spontaneous
  Country: US (occurrence: US)
  Receive Date: 20171206
  Receipt Date: 20171206
  Transmission Date: 20180321
  Serious: No
  Sender: FDA-Public Use
  Company Number: US-009507513-1711USA004366

PATIENT
  Sex: Female

DRUGS (1)
  1. NEXPLANON [Suspect]
     Active Substance: ETONOGESTREL
     Dosage: 1 ROD, IN ARM
     Route: 059

REACTIONS (4)
  - Device difficult to use [Not Recovered/Not Resolved]
  - Fibrosis [Unknown]
  - Implant site scar [Unknown]
  - Complication of device insertion [Not Recovered/Not Resolved]
